FAERS Safety Report 4436284-3 (Version None)
Quarter: 2004Q3

REPORT INFORMATION
  Report Type: 
  Country: None (occurrence: None)
  Receive Date: 20040830
  Receipt Date: 20040702
  Transmission Date: 20050211
  Serious: No
  Sender: FDA-Public Use
  Company Number: US-BRISTOL-MYERS SQUIBB COMPANY-12631545

PATIENT
  Age: 5 Decade
  Sex: Male

DRUGS (2)
  1. ERBITUX [Suspect]
     Route: 042
     Dates: start: 20040702, end: 20040702
  2. BENADRYL [Concomitant]
     Indication: PREMEDICATION
     Route: 042
     Dates: start: 20040702, end: 20040702

REACTIONS (1)
  - DYSKINESIA [None]
